FAERS Safety Report 9234623 (Version 2)
Quarter: 2013Q2

REPORT INFORMATION
  Report Type: Spontaneous
  Country: JP (occurrence: JP)
  Receive Date: 20130416
  Receipt Date: 20130429
  Transmission Date: 20140414
  Serious: No
  Sender: FDA-Public Use
  Company Number: JP-B.I. PHARMACEUTICALS,INC./RIDGEFIELD-2013-BI-09647NB

PATIENT
  Age: 80 Year
  Sex: Female

DRUGS (1)
  1. BI-SIFROL [Suspect]
     Indication: PARKINSON^S DISEASE
     Route: 048

REACTIONS (2)
  - Oedema [Unknown]
  - Blood pressure fluctuation [Unknown]
